FAERS Safety Report 8413992-0 (Version None)
Quarter: 2012Q2

REPORT INFORMATION
  Report Type: 
  Country: None (occurrence: None)
  Receive Date: 20120605
  Receipt Date: 20120522
  Transmission Date: 20120825
  Serious: No
  Sender: FDA-Public Use
  Company Number: US-ASTRAZENECA-2012SE33058

PATIENT
  Age: 19 Year
  Sex: Male

DRUGS (1)
  1. SEROQUEL XR [Suspect]
     Route: 048

REACTIONS (4)
  - SCHIZOPHRENIA [None]
  - BORDERLINE PERSONALITY DISORDER [None]
  - AUTISM [None]
  - BIPOLAR DISORDER [None]
